FAERS Safety Report 14934899 (Version 1)
Quarter: 2018Q2

REPORT INFORMATION
  Report Type: Spontaneous
  Country: JP (occurrence: JP)
  Receive Date: 20180524
  Receipt Date: 20180524
  Transmission Date: 20180711
  Serious: Yes (Death)
  Sender: FDA-Public Use
  Company Number: JP-ALLERGAN-1813292US

PATIENT
  Age: 73 Year
  Sex: Male

DRUGS (8)
  1. SILODOSIN - BP [Suspect]
     Active Substance: SILODOSIN
     Indication: BENIGN PROSTATIC HYPERPLASIA
     Dosage: 4 MG, UNK
     Route: 048
     Dates: start: 20180116
  2. STAYBLA [Concomitant]
     Active Substance: IMIDAFENACIN
     Indication: PRODUCT USED FOR UNKNOWN INDICATION
     Route: 048
  3. FUROSEMIDE. [Concomitant]
     Active Substance: FUROSEMIDE
     Indication: PRODUCT USED FOR UNKNOWN INDICATION
     Route: 065
  4. QUETIAPINE. [Concomitant]
     Active Substance: QUETIAPINE
     Indication: PRODUCT USED FOR UNKNOWN INDICATION
     Route: 048
  5. SAMSCA [Concomitant]
     Active Substance: TOLVAPTAN
     Indication: PRODUCT USED FOR UNKNOWN INDICATION
     Route: 048
  6. CALONAL [Concomitant]
     Active Substance: ACETAMINOPHEN
     Indication: PRODUCT USED FOR UNKNOWN INDICATION
     Route: 065
  7. SPIRONOLACTONE. [Suspect]
     Active Substance: SPIRONOLACTONE
     Indication: PRODUCT USED FOR UNKNOWN INDICATION
     Route: 048
  8. WAKOBITAL [Concomitant]
     Indication: PRODUCT USED FOR UNKNOWN INDICATION
     Route: 054

REACTIONS (2)
  - Gynaecomastia [Unknown]
  - Lung neoplasm malignant [Fatal]

NARRATIVE: CASE EVENT DATE: 20180221
